FAERS Safety Report 7633579-7 (Version None)
Quarter: 2011Q3

REPORT INFORMATION
  Report Type: 
  Country: None (occurrence: None)
  Receive Date: 20110725
  Receipt Date: 20110705
  Transmission Date: 20111222
  Serious: Yes (Hospitalization)
  Sender: FDA-Public Use
  Company Number: US-GLAXOSMITHKLINE-A0873079A

PATIENT
  Age: 47 Year
  Sex: Male
  Weight: 83.6 kg

DRUGS (5)
  1. COZAAR [Concomitant]
  2. AVANDIA [Suspect]
     Indication: TYPE 2 DIABETES MELLITUS
     Dosage: 8MG PER DAY
     Route: 048
     Dates: start: 20060601, end: 20070301
  3. FLEXERIL [Concomitant]
  4. INSULIN [Concomitant]
  5. ZOCOR [Concomitant]

REACTIONS (3)
  - CORONARY ARTERY BYPASS [None]
  - RESPIRATORY DISTRESS [None]
  - CORONARY ARTERY DISEASE [None]
